FAERS Safety Report 4649837-4 (Version None)
Quarter: 2005Q2

REPORT INFORMATION
  Report Type: 
  Country: None (occurrence: None)
  Receive Date: 20050502
  Receipt Date: 20050427
  Transmission Date: 20051028
  Serious: Yes (Other)
  Sender: FDA-Public Use
  Company Number: PHEH2005US04894

PATIENT
  Age: 70 Year
  Sex: Female

DRUGS (4)
  1. LAMISIL [Suspect]
     Indication: NAIL TINEA
     Dosage: 250 MG, QD
     Route: 048
     Dates: start: 20050226
  2. EVISTA [Concomitant]
  3. ZOCOR [Concomitant]
  4. AVAPRO [Concomitant]

REACTIONS (2)
  - FATIGUE [None]
  - HYPOTHYROIDISM [None]
